FAERS Safety Report 11923341 (Version 1)
Quarter: 2016Q1

REPORT INFORMATION
  Report Type: Spontaneous
  Country: CN (occurrence: CN)
  Receive Date: 20160118
  Receipt Date: 20160118
  Transmission Date: 20160526
  Serious: Yes (Other)
  Sender: FDA-Public Use
  Company Number: CN-APOTEX-2016AP005215

PATIENT
  Age: 55 Year
  Sex: Female

DRUGS (3)
  1. PAXIL [Suspect]
     Active Substance: PAROXETINE HYDROCHLORIDE
     Indication: DEPRESSION
     Route: 048
  2. PAROXETINE [Suspect]
     Active Substance: PAROXETINE\PAROXETINE HYDROCHLORIDE
     Indication: DEPRESSION
     Route: 065
  3. DIAZEPAM. [Suspect]
     Active Substance: DIAZEPAM
     Indication: DEPRESSION
     Route: 065

REACTIONS (5)
  - Drug ineffective [Unknown]
  - Dizziness [Recovering/Resolving]
  - Cerebrovascular insufficiency [Unknown]
  - Disease recurrence [Recovered/Resolved]
  - Cardiac disorder [Unknown]

NARRATIVE: CASE EVENT DATE: 2010
